FAERS Safety Report 10078417 (Version 1)
Quarter: 2014Q2

REPORT INFORMATION
  Report Type: Spontaneous
  Country: US (occurrence: None)
  Receive Date: 20140401
  Receipt Date: 20140401
  Transmission Date: 20141212
  Serious: Yes (Other)
  Sender: FDA-Public Use
  Company Number: HA13-178-AE

PATIENT
  Age: 66 Year
  Sex: Male
  Weight: 79.38 kg

DRUGS (1)
  1. GABAPENTIN [Suspect]
     Indication: FIBROMYALGIA
     Dosage: 5 CAPSULES A DAY, ORAL
     Route: 048

REACTIONS (11)
  - Dizziness [None]
  - Gingivitis [None]
  - Amnesia [None]
  - Rash [None]
  - Hypertension [None]
  - Vertigo [None]
  - Confusional state [None]
  - Stupor [None]
  - Hyperventilation [None]
  - Movement disorder [None]
  - Nail disorder [None]
